FAERS Safety Report 14083791 (Version 1)
Quarter: 2017Q4

REPORT INFORMATION
  Report Type: Spontaneous
  Country: US (occurrence: US)
  Receive Date: 20171013
  Receipt Date: 20171013
  Transmission Date: 20180321
  Serious: No
  Sender: FDA-Public Use
  Company Number: US-009507513-1710USA006401

PATIENT
  Age: 34 Year
  Sex: Female
  Weight: 81.63 kg

DRUGS (2)
  1. NUVARING [Suspect]
     Active Substance: ETHINYL ESTRADIOL\ETONOGESTREL
     Indication: CONTRACEPTION
     Route: 067
  2. ANTACID (ALUMINUM HYDROXIDE (+) MAGNESIUM HYDROXIDE (+) SIMETHICONE) [Concomitant]

REACTIONS (1)
  - Abnormal withdrawal bleeding [Unknown]
